FAERS Safety Report 14267810 (Version 1)
Quarter: 2017Q4

REPORT INFORMATION
  Report Type: Spontaneous
  Country: US (occurrence: None)
  Receive Date: 20171211
  Receipt Date: 20171211
  Transmission Date: 20180321
  Serious: No
  Sender: FDA-Public Use
  Company Number: None

PATIENT
  Age: 50 Year
  Sex: Male
  Weight: 78.02 kg

DRUGS (3)
  1. OYSTER EXTRACT [Concomitant]
  2. STINGING NETTLE [Concomitant]
     Active Substance: HERBALS
  3. SUPREP BOWEL PREP [Suspect]
     Active Substance: MAGNESIUM SULFATE\POTASSIUM SULFATE\SODIUM SULFATE
     Indication: COLONOSCOPY
     Dosage: 17.5G/3.13G/1.69 PER 6 OUNCES 6 OUNCE BOTTLE MIXED W/10 OUNCES OF WATER 2 DOSES/PACKAGE MIXED WITH WATER AND DRANK
     Dates: start: 20171012, end: 20171012

REACTIONS (3)
  - Tremor [None]
  - Chills [None]
  - Feeling cold [None]

NARRATIVE: CASE EVENT DATE: 20171012
